FAERS Safety Report 6956685-9 (Version None)
Quarter: 2010Q3

REPORT INFORMATION
  Report Type: 
  Country: None (occurrence: None)
  Receive Date: 20100830
  Receipt Date: 20100819
  Transmission Date: 20110219
  Serious: Yes (Death, Hospitalization)
  Sender: FDA-Public Use
  Company Number: DE-WYE-H17117310

PATIENT
  Age: 77 Year
  Sex: Male

DRUGS (9)
  1. CORDAREX [Suspect]
     Indication: ATRIAL FIBRILLATION
     Route: 048
     Dates: start: 20090101
  2. BISOPROLOL FUMARATE [Concomitant]
  3. EPLERENONE [Concomitant]
  4. ALLOPURINOL [Concomitant]
  5. MARCUMAR [Concomitant]
     Dosage: UNKNOWN
  6. TORSEMIDE [Concomitant]
  7. GLIMEPIRIDE [Concomitant]
  8. VALSARTAN AND HYDROCHLOROTHIAZIDE [Concomitant]
     Dosage: 160/25 MG DAILY
  9. TAMSULOSIN HCL [Concomitant]

REACTIONS (1)
  - SUDDEN CARDIAC DEATH [None]
